FAERS Safety Report 5807930-4 (Version None)
Quarter: 2008Q3

REPORT INFORMATION
  Report Type: 
  Country: None (occurrence: None)
  Receive Date: 20080711
  Receipt Date: 20080630
  Transmission Date: 20090109
  Serious: Yes (Other)
  Sender: FDA-Public Use
  Company Number: US-PFIZER INC-2008039257

PATIENT
  Sex: Male
  Weight: 159.09 kg

DRUGS (10)
  1. CHANTIX [Suspect]
     Indication: SMOKING CESSATION THERAPY
  2. LEVOTHYROXINE SODIUM [Concomitant]
     Indication: HYPOTHYROIDISM
  3. FEXOFENADINE [Concomitant]
     Indication: HYPERSENSITIVITY
  4. NAPROXEN [Concomitant]
     Indication: ARTHRITIS
  5. LORTAB [Concomitant]
     Indication: ARTHRITIS
  6. ABILIFY [Concomitant]
     Indication: BIPOLAR DISORDER
  7. TRILEPTAL [Concomitant]
     Indication: BIPOLAR DISORDER
  8. ALBUTEROL [Concomitant]
  9. RANITIDINE HYDROCHLORIDE [Concomitant]
  10. HYOSCYAMINE [Concomitant]
     Indication: IRRITABLE BOWEL SYNDROME

REACTIONS (2)
  - BIPOLAR DISORDER [None]
  - HYPERTENSION [None]
